FAERS Safety Report 19948530 (Version 1)
Quarter: 2021Q4

REPORT INFORMATION
  Report Type: Spontaneous
  Country: TR (occurrence: TR)
  Receive Date: 20211013
  Receipt Date: 20211013
  Transmission Date: 20220303
  Serious: Yes (Hospitalization, Other)
  Sender: FDA-Public Use
  Company Number: TR-IPCA LABORATORIES LIMITED-IPC-2021-TR-001744

PATIENT

DRUGS (1)
  1. METFORMIN HYDROCHLORIDE [Suspect]
     Active Substance: METFORMIN HYDROCHLORIDE
     Indication: Product used for unknown indication
     Dosage: 100000 MILLIGRAM (100 TABLETS OF 1000 MILLIGRAM)
     Route: 048

REACTIONS (8)
  - Lactic acidosis [Recovering/Resolving]
  - Loss of consciousness [Recovering/Resolving]
  - Urine output decreased [Recovering/Resolving]
  - Hypotension [Recovering/Resolving]
  - Metabolic acidosis [Recovering/Resolving]
  - Suicide attempt [Unknown]
  - Toxicity to various agents [Recovering/Resolving]
  - Overdose [Unknown]
